FAERS Safety Report 7270929-8 (Version None)
Quarter: 2011Q1

REPORT INFORMATION
  Report Type: 
  Country: None (occurrence: None)
  Receive Date: 20110202
  Receipt Date: 20110127
  Transmission Date: 20110831
  Serious: No
  Sender: FDA-Public Use
  Company Number: US-BAYER-2011-009999

PATIENT
  Sex: Male

DRUGS (1)
  1. BETAPACE [Suspect]
     Indication: VENTRICULAR ARRHYTHMIA
     Dosage: 80 MG, BID
     Route: 048
     Dates: start: 20080101

REACTIONS (1)
  - UPPER AIRWAY OBSTRUCTION [None]
